FAERS Safety Report 8971115 (Version 2)
Quarter: 2013Q1

REPORT INFORMATION
  Report Type: Spontaneous
  Country: FR (occurrence: FR)
  Receive Date: 20121218
  Receipt Date: 20130122
  Transmission Date: 20140127
  Serious: Yes (Other)
  Sender: FDA-Public Use
  Company Number: FR-PFIZER INC-2012314874

PATIENT
  Age: 55 Year
  Sex: Male

DRUGS (7)
  1. TYGACIL [Suspect]
     Indication: INFECTION
     Dosage: 100 MG, 2X/DAY
     Route: 042
     Dates: start: 20121023, end: 20121209
  2. PARIET [Concomitant]
  3. LOVENOX [Concomitant]
  4. IMOVANE [Concomitant]
  5. ACUPAN [Concomitant]
  6. DORIPENEM [Concomitant]
     Indication: INFECTION
  7. COLIMYCIN [Concomitant]
     Indication: INFECTION

REACTIONS (3)
  - Coagulation factor V level decreased [Recovered/Resolved]
  - Prothrombin time ratio decreased [Recovered/Resolved]
  - Activated partial thromboplastin time prolonged [Unknown]
